FAERS Safety Report 14168901 (Version 2)
Quarter: 2018Q3

REPORT INFORMATION
  Report Type: Spontaneous
  Country: US (occurrence: US)
  Receive Date: 20171107
  Receipt Date: 20180822
  Transmission Date: 20181010
  Serious: Yes (Other)
  Sender: FDA-Public Use
  Company Number: US-BAUSCH-BL-2017-027046

PATIENT
  Sex: Male

DRUGS (2)
  1. UCERIS [Suspect]
     Active Substance: BUDESONIDE
     Indication: COLITIS ULCERATIVE
     Route: 065
  2. UCERIS [Suspect]
     Active Substance: BUDESONIDE
     Route: 065
     Dates: start: 20180816

REACTIONS (5)
  - Colitis ulcerative [Unknown]
  - Symptom recurrence [Unknown]
  - Dysphonia [Unknown]
  - Treatment noncompliance [Recovered/Resolved]
  - Eyelid oedema [Unknown]
